FAERS Safety Report 22075156 (Version 1)
Quarter: 2023Q1

REPORT INFORMATION
  Report Type: Spontaneous
  Country: FR (occurrence: FR)
  Receive Date: 20230308
  Receipt Date: 20230308
  Transmission Date: 20230418
  Serious: Yes (Hospitalization)
  Sender: FDA-Public Use
  Company Number: None

PATIENT
  Sex: Male

DRUGS (2)
  1. ECONAZOLE [Suspect]
     Active Substance: ECONAZOLE
     Indication: Dermatitis diaper
     Dosage: 1 DOSAGE FORM, 1 TOTAL
     Route: 003
     Dates: start: 202302, end: 202302
  2. POTASSIUM PERMANGANATE [Suspect]
     Active Substance: POTASSIUM PERMANGANATE
     Indication: Dermatitis diaper
     Dosage: 1 DOSAGE FORM, 1 TOTAL
     Route: 003
     Dates: start: 202302, end: 202302

REACTIONS (1)
  - Burns second degree [Recovering/Resolving]

NARRATIVE: CASE EVENT DATE: 20230201
